FAERS Safety Report 25098676 (Version 2)
Quarter: 2025Q2

REPORT INFORMATION
  Report Type: Spontaneous
  Country: US (occurrence: US)
  Receive Date: 20250320
  Receipt Date: 20250418
  Transmission Date: 20250716
  Serious: Yes (Hospitalization, Other)
  Sender: ROCHE
  Company Number: US-ROCHE-10000235208

PATIENT
  Age: 56 Year
  Sex: Female
  Weight: 78.9 kg

DRUGS (19)
  1. OCREVUS [Suspect]
     Active Substance: OCRELIZUMAB
     Indication: Relapsing-remitting multiple sclerosis
     Route: 065
  2. ACETAMINOPHEN [Concomitant]
     Active Substance: ACETAMINOPHEN
     Dosage: TOOK 500-100MG
     Route: 048
  3. ALPHA LIPOIC ACID [Concomitant]
     Active Substance: .ALPHA.-LIPOIC ACID
     Route: 048
  4. PRINCIPEN [Concomitant]
     Active Substance: AMPICILLIN TRIHYDRATE
     Route: 048
  5. LIPITOR [Concomitant]
     Active Substance: ATORVASTATIN CALCIUM
     Route: 048
  6. VITAMIN D [Concomitant]
     Active Substance: VITAMIN D NOS
     Route: 048
  7. SYNTHROID [Concomitant]
     Active Substance: LEVOTHYROXINE SODIUM
     Route: 048
  8. PRINIVIL [Concomitant]
     Active Substance: LISINOPRIL
     Route: 048
  9. MAGNESIUM [Concomitant]
     Active Substance: MAGNESIUM
  10. TOPROL XL [Concomitant]
     Active Substance: METOPROLOL SUCCINATE
  11. SINGULAIR [Concomitant]
     Active Substance: MONTELUKAST SODIUM
  12. LYRICA [Concomitant]
     Active Substance: PREGABALIN
     Route: 048
  13. ZOLOFT [Concomitant]
     Active Substance: SERTRALINE HYDROCHLORIDE
     Route: 048
  14. DITROPAN [Concomitant]
     Active Substance: OXYBUTYNIN CHLORIDE
  15. DIPHENHYDRAMINE HYDROCHLORIDE [Concomitant]
     Active Substance: DIPHENHYDRAMINE HYDROCHLORIDE
  16. BENADRYL ALLERGY [Concomitant]
     Active Substance: DIPHENHYDRAMINE HYDROCHLORIDE
  17. FLONASE [Concomitant]
     Active Substance: FLUTICASONE PROPIONATE
  18. MENTHOL [Concomitant]
     Active Substance: MENTHOL
  19. LIORESAL [Concomitant]
     Active Substance: BACLOFEN
     Route: 048

REACTIONS (12)
  - Sepsis [Unknown]
  - Pneumonia [Unknown]
  - Respiratory failure [Unknown]
  - Acute myocardial infarction [Unknown]
  - Stress cardiomyopathy [Unknown]
  - Retroperitoneal haemorrhage [Unknown]
  - Lymphocyte count decreased [Unknown]
  - Red cell distribution width increased [Unknown]
  - Mean cell volume increased [Unknown]
  - Urinary tract infection [Unknown]
  - Central nervous system infection [Unknown]
  - Blindness [Unknown]
